FAERS Safety Report 12185120 (Version 1)
Quarter: 2016Q1

REPORT INFORMATION
  Report Type: Spontaneous
  Country: FR (occurrence: FR)
  Receive Date: 20160316
  Receipt Date: 20160316
  Transmission Date: 20160526
  Serious: Yes (Hospitalization)
  Sender: FDA-Public Use
  Company Number: FR-ELI_LILLY_AND_COMPANY-FR201603001605

PATIENT
  Age: 41 Year
  Sex: Female

DRUGS (2)
  1. CYMBALTA [Suspect]
     Active Substance: DULOXETINE HYDROCHLORIDE
     Indication: BACK PAIN
     Dosage: UNK, SINGLE
     Route: 065
     Dates: start: 20160212, end: 20160212
  2. LEVOTHYROX [Concomitant]
     Active Substance: LEVOTHYROXINE
     Indication: THYROID NEOPLASM
     Dosage: UNK, UNKNOWN
     Route: 065

REACTIONS (11)
  - Dry mouth [Recovered/Resolved]
  - Muscle spasms [Recovered/Resolved]
  - Feeling of body temperature change [Recovered/Resolved]
  - Dyspnoea [Recovered/Resolved]
  - Feeling drunk [Unknown]
  - Insomnia [Unknown]
  - Oropharyngeal discomfort [Recovered/Resolved]
  - Dysstasia [Unknown]
  - Trismus [Unknown]
  - Asphyxia [Recovered/Resolved]
  - Gait disturbance [Recovered/Resolved]

NARRATIVE: CASE EVENT DATE: 20160212
